FAERS Safety Report 16313796 (Version 1)
Quarter: 2019Q2

REPORT INFORMATION
  Report Type: Spontaneous
  Country: US (occurrence: US)
  Receive Date: 20190515
  Receipt Date: 20190515
  Transmission Date: 20190711
  Serious: Yes (Other)
  Sender: FDA-Public Use
  Company Number: US-PFIZER INC-2019200794

PATIENT
  Age: 68 Year
  Sex: Male
  Weight: 85.64 kg

DRUGS (2)
  1. GLUCOCIL [Concomitant]
     Indication: DIABETES MELLITUS
     Dosage: UNK, 2X/DAY (TAKE THEM IN THE MORNING AND IN THE EVENING )
     Dates: start: 2019
  2. LYRICA [Suspect]
     Active Substance: PREGABALIN
     Indication: NEUROPATHY PERIPHERAL
     Dosage: 150 MG, 3X/DAY
     Route: 048

REACTIONS (5)
  - Gait disturbance [Unknown]
  - Skull fracture [Unknown]
  - Pelvic fracture [Unknown]
  - Coma [Unknown]
  - Paraesthesia [Unknown]
